FAERS Safety Report 5474041-X (Version None)
Quarter: 2007Q4

REPORT INFORMATION
  Report Type: 
  Country: None (occurrence: None)
  Receive Date: 20071002
  Receipt Date: 20070919
  Transmission Date: 20080405
  Serious: Yes (Other)
  Sender: FDA-Public Use
  Company Number: PHHO2007BR15626

PATIENT
  Age: 48 Year
  Sex: Male
  Weight: 74 kg

DRUGS (1)
  1. GALVUS MET [Suspect]
     Indication: HYPERGLYCAEMIA
     Dosage: 100/850 MG/DAILY
     Route: 048

REACTIONS (2)
  - FATIGUE [None]
  - HYPERGLYCAEMIA [None]
